FAERS Safety Report 6332658-4 (Version None)
Quarter: 2009Q3

REPORT INFORMATION
  Report Type: 
  Country: None (occurrence: None)
  Receive Date: 20090828
  Receipt Date: 20090818
  Transmission Date: 20100115
  Serious: Yes (Hospitalization, Other)
  Sender: FDA-Public Use
  Company Number: AU-NOVOPROD-290687

PATIENT
  Age: 32 Year
  Sex: Male
  Weight: 105 kg

DRUGS (3)
  1. NOVOSEVEN [Suspect]
     Indication: HAEMORRHAGE
     Dosage: 9.6 MG, SINGLE
     Route: 042
     Dates: start: 20090305, end: 20090305
  2. NOVOSEVEN [Suspect]
     Dosage: 9.6 MG, SINGLE
     Route: 042
     Dates: start: 20090305, end: 20090305
  3. HEPARIN [Concomitant]
     Dates: start: 20090305

REACTIONS (2)
  - DEEP VEIN THROMBOSIS [None]
  - MULTI-ORGAN FAILURE [None]
